FAERS Safety Report 8321268-5 (Version None)
Quarter: 2012Q2

REPORT INFORMATION
  Report Type: 
  Country: None (occurrence: None)
  Receive Date: 20120430
  Receipt Date: 20120420
  Transmission Date: 20120825
  Serious: Yes (Hospitalization)
  Sender: FDA-Public Use
  Company Number: FR-BRISTOL-MYERS SQUIBB COMPANY-16424061

PATIENT
  Age: 18 Year
  Sex: Female
  Weight: 59 kg

DRUGS (3)
  1. VOLTAREN [Concomitant]
     Indication: JUVENILE ARTHRITIS
     Dosage: LONG TERM
     Route: 048
     Dates: start: 20111001
  2. ORENCIA [Suspect]
     Indication: JUVENILE ARTHRITIS
     Route: 042
     Dates: start: 20110906, end: 20120125
  3. ACETAMINOPHEN [Concomitant]

REACTIONS (2)
  - GASTROENTERITIS [None]
  - EOSINOPHILIA [None]
